FAERS Safety Report 10159975 (Version 1)
Quarter: 2014Q2

REPORT INFORMATION
  Report Type: Spontaneous
  Country: US (occurrence: US)
  Receive Date: 20140508
  Receipt Date: 20140508
  Transmission Date: 20141212
  Serious: No
  Sender: FDA-Public Use
  Company Number: US-GLAXOSMITHKLINE-A1047813A

PATIENT
  Age: 15 Month
  Sex: 0

DRUGS (1)
  1. TYKERB [Suspect]
     Dosage: 250MG SEE DOSAGE TEXT
     Route: 048

REACTIONS (1)
  - Accidental exposure to product by child [Unknown]
